FAERS Safety Report 16124903 (Version 1)
Quarter: 2019Q1

REPORT INFORMATION
  Report Type: Spontaneous
  Country: GB (occurrence: GB)
  Receive Date: 20190327
  Receipt Date: 20190327
  Transmission Date: 20190418
  Serious: Yes (Other)
  Sender: FDA-Public Use
  Company Number: GB-MYLANLABS-2019M1027275

PATIENT
  Age: 32 Year
  Sex: Female

DRUGS (8)
  1. LEVETIRACETAM. [Suspect]
     Active Substance: LEVETIRACETAM
     Indication: EPILEPSY
     Dosage: 1750 MILLIGRAM, QD (750MG MORNING AND 1000MG EVENING.)
     Route: 048
     Dates: start: 20181024
  2. AMITRIPTYLINE [Concomitant]
     Active Substance: AMITRIPTYLINE
  3. PREGABALIN. [Concomitant]
     Active Substance: PREGABALIN
  4. SERTRALINE [Concomitant]
     Active Substance: SERTRALINE HYDROCHLORIDE
     Dosage: UNK
  5. OMEPRAZOLE. [Concomitant]
     Active Substance: OMEPRAZOLE
  6. QUETIAPINE. [Concomitant]
     Active Substance: QUETIAPINE
  7. TRAMADOL. [Concomitant]
     Active Substance: TRAMADOL
  8. MORPHINE [Concomitant]
     Active Substance: MORPHINE

REACTIONS (1)
  - Kidney infection [Recovered/Resolved with Sequelae]

NARRATIVE: CASE EVENT DATE: 20181024
